FAERS Safety Report 10549914 (Version 3)
Quarter: 2015Q2

REPORT INFORMATION
  Report Type: Spontaneous
  Country: US (occurrence: None)
  Receive Date: 20141020
  Receipt Date: 20150420
  Transmission Date: 20150821
  Serious: No
  Sender: FDA-Public Use
  Company Number: AEGR000726

PATIENT
  Age: 64 Year
  Sex: Female
  Weight: 60.8 kg

DRUGS (16)
  1. MICARDIS [Concomitant]
     Active Substance: TELMISARTAN
  2. PREVACID [Concomitant]
     Active Substance: LANSOPRAZOLE
  3. LISINOPRIL (LISINOPRIL) [Concomitant]
     Active Substance: LISINOPRIL
  4. ESGIC 9BUTALBITAL, CAFFEINE, PARACETAMOL) CAPSULE [Concomitant]
  5. VITATMIN E (TOCOPHEROL) [Concomitant]
  6. MULTIVITAMIN (VITAMINS NOS) [Concomitant]
     Active Substance: VITAMINS
  7. HYDROCHLOROTHIAZIDE (HYDROCHLOROTHIAZIDE) [Concomitant]
     Active Substance: HYDROCHLOROTHIAZIDE
  8. PROGEST (PROGESTERONE) [Concomitant]
  9. FISH OIL (FISH OIL) [Concomitant]
     Active Substance: FISH OIL
  10. ZYRTEC [Concomitant]
     Active Substance: CETIRIZINE HYDROCHLORIDE
  11. VITAMIN D3 [Concomitant]
     Active Substance: CHOLECALCIFEROL
  12. JUXTAPID [Suspect]
     Active Substance: LOMITAPIDE MESYLATE
     Indication: TYPE IIA HYPERLIPIDAEMIA
     Route: 048
     Dates: start: 201309, end: 201311
  13. IMITREX [Concomitant]
     Active Substance: SUMATRIPTAN\SUMATRIPTAN SUCCINATE
  14. OMEGA 3-6-9 (FISH OIL, TOCOPHEROL) [Concomitant]
  15. PROGESTERONE (PROGESTERONE) [Concomitant]
  16. TESTOSTERONE (TESTOSTERONE) [Concomitant]

REACTIONS (7)
  - Blood cholesterol increased [None]
  - Dehydration [None]
  - Nausea [None]
  - Abdominal pain upper [None]
  - Tachycardia [None]
  - Diarrhoea [None]
  - Inappropriate schedule of drug administration [None]

NARRATIVE: CASE EVENT DATE: 201309
